FAERS Safety Report 22619187 (Version 2)
Quarter: 2024Q3

REPORT INFORMATION
  Report Type: Spontaneous
  Country: US (occurrence: US)
  Receive Date: 20230620
  Receipt Date: 20240711
  Transmission Date: 20241016
  Serious: No
  Sender: PIERRE FABRE MEDICAMENT
  Company Number: US-PFM-2023-01177

PATIENT
  Age: 0 Year
  Sex: Male

DRUGS (3)
  1. HEMANGEOL [Suspect]
     Active Substance: PROPRANOLOL HYDROCHLORIDE
     Indication: Haemangioma
     Dosage: 2.3 ML, BID (2/DAY)
     Route: 048
     Dates: start: 202301
  2. HEMANGEOL [Suspect]
     Active Substance: PROPRANOLOL HYDROCHLORIDE
     Dosage: 3.3 ML, BID (2/DAY)
     Route: 048
     Dates: start: 202301
  3. HEMANGEOL [Suspect]
     Active Substance: PROPRANOLOL HYDROCHLORIDE
     Dosage: 3.3 ML IN THE MORNING AND 2.5ML IN THE AFTERNOON
     Route: 048

REACTIONS (6)
  - Drug tolerance [Unknown]
  - Insomnia [Unknown]
  - Sleep disorder [Unknown]
  - Irritability [Unknown]
  - Product administered to patient of inappropriate age [Unknown]
  - Off label use [Unknown]

NARRATIVE: CASE EVENT DATE: 20230202
